FAERS Safety Report 6603735-5 (Version None)
Quarter: 2010Q1

REPORT INFORMATION
  Report Type: 
  Country: None (occurrence: None)
  Receive Date: 20100226
  Receipt Date: 20090108
  Transmission Date: 20100710
  Serious: No
  Sender: FDA-Public Use
  Company Number: A0762847A

PATIENT
  Sex: Male

DRUGS (3)
  1. LAMICTAL CD [Suspect]
     Route: 048
     Dates: start: 20081201
  2. DILANTIN [Concomitant]
  3. BABY ASPIRIN [Concomitant]

REACTIONS (4)
  - DISSOCIATION [None]
  - FATIGUE [None]
  - LETHARGY [None]
  - PRURITUS [None]
